FAERS Safety Report 20823099 (Version 2)
Quarter: 2022Q2

REPORT INFORMATION
  Report Type: Report from Study
  Country: BR (occurrence: BR)
  Receive Date: 20220512
  Receipt Date: 20220518
  Transmission Date: 20220721
  Serious: Yes (Hospitalization, Other)
  Sender: FDA-Public Use
  Company Number: BR-BRISTOL-MYERS SQUIBB COMPANY-2022-035239

PATIENT
  Age: 57 Year
  Sex: Female
  Weight: 80 kg

DRUGS (16)
  1. NIVOLUMAB [Suspect]
     Active Substance: NIVOLUMAB
     Indication: Breast cancer
     Dosage: LAST DOSE 124 ML ADMINISTERED ON 13-APR-2022
     Route: 042
     Dates: start: 20211111
  2. NIVOLUMAB [Suspect]
     Active Substance: NIVOLUMAB
     Dosage: RECENT DOSE 124 ML ADMINISTERED ON 13-APR-2022
     Route: 042
     Dates: start: 20220413
  3. PACLITAXEL [Suspect]
     Active Substance: PACLITAXEL
     Indication: Breast cancer
     Dosage: LAST DOSE 145MG ADMINISTERED ON 03-FEB-2022
     Route: 042
     Dates: start: 20211111
  4. DOXORUBICIN HYDROCHLORIDE [Suspect]
     Active Substance: DOXORUBICIN HYDROCHLORIDE
     Indication: Breast cancer
     Dosage: LAST DOSE 113 MG ADMINISTERED ON 13-APR-2022
     Route: 042
     Dates: start: 20220210
  5. CYCLOPHOSPHAMIDE [Suspect]
     Active Substance: CYCLOPHOSPHAMIDE
     Indication: Breast cancer
     Dosage: LAST DOSE 1128 MG ADMINISTERED ON 13-APR-2022
     Route: 042
     Dates: start: 20220210
  6. NIVOLUMAB\RELATLIMAB-RMBW [Suspect]
     Active Substance: NIVOLUMAB\RELATLIMAB-RMBW
     Dosage: RECENT DOSE 124 ML ADMINISTERED ON 13-APR-2022
     Route: 042
     Dates: start: 20220413
  7. LOSARTAN [Concomitant]
     Active Substance: LOSARTAN
     Indication: Product used for unknown indication
     Route: 048
     Dates: start: 2005
  8. HYDROCHLOROTHIAZIDE [Concomitant]
     Active Substance: HYDROCHLOROTHIAZIDE
     Indication: Product used for unknown indication
     Route: 048
     Dates: start: 2005
  9. BISACODYL [Concomitant]
     Active Substance: BISACODYL
     Indication: Prophylaxis
     Route: 048
     Dates: start: 20211229
  10. AMLODIPINE [Concomitant]
     Active Substance: AMLODIPINE BESYLATE
     Indication: Product used for unknown indication
     Route: 048
     Dates: start: 20220116
  11. LEVOTHYROXINE [Concomitant]
     Active Substance: LEVOTHYROXINE
     Indication: Product used for unknown indication
     Route: 048
     Dates: start: 20220413
  12. OMEPRAZOLE [Concomitant]
     Active Substance: OMEPRAZOLE
     Indication: Prophylaxis
     Route: 048
     Dates: start: 20211112
  13. MINERAL OIL [Concomitant]
     Active Substance: MINERAL OIL
     Indication: Prophylaxis
     Dosage: 1 DF= 20 UNITS NOS
     Route: 048
     Dates: start: 20211229
  14. Coronavirus disease-19 (COVID-19) vaccination (AstraZeneca) [Concomitant]
     Indication: Prophylaxis
     Dosage: 1 ST DOSE
     Route: 065
     Dates: start: 20210617, end: 20210617
  15. Coronavirus disease-19 (COVID-19) vaccination (AstraZeneca) [Concomitant]
     Route: 065
     Dates: start: 20211116, end: 20211116
  16. CEPHALEXIN [Concomitant]
     Active Substance: CEPHALEXIN
     Indication: Prophylaxis
     Route: 048
     Dates: start: 20220502

REACTIONS (1)
  - Post procedural complication [Recovered/Resolved]

NARRATIVE: CASE EVENT DATE: 20220503
